FAERS Safety Report 6309868-5 (Version None)
Quarter: 2009Q3

REPORT INFORMATION
  Report Type: 
  Country: None (occurrence: None)
  Receive Date: 20090814
  Receipt Date: 20090803
  Transmission Date: 20100115
  Serious: Yes (Hospitalization, Other)
  Sender: FDA-Public Use
  Company Number: US-PFIZER INC-2009250085

PATIENT

DRUGS (6)
  1. GLIBENCLAMIDE [Suspect]
  2. ARICEPT [Suspect]
  3. VIOXX [Suspect]
  4. FISH OIL [Suspect]
  5. CALCIUM [Suspect]
  6. FOSAMAX [Suspect]

REACTIONS (8)
  - ABNORMAL BEHAVIOUR [None]
  - ANAEMIA [None]
  - BLOOD GLUCOSE FLUCTUATION [None]
  - DECREASED APPETITE [None]
  - INAPPROPRIATE SCHEDULE OF DRUG ADMINISTRATION [None]
  - PULMONARY EMBOLISM [None]
  - THROMBOSIS [None]
  - TYPHOID FEVER [None]
